FAERS Safety Report 6230632-X (Version None)
Quarter: 2009Q2

REPORT INFORMATION
  Report Type: 
  Country: None (occurrence: None)
  Receive Date: 20090611
  Receipt Date: 20090526
  Transmission Date: 20091009
  Serious: Yes (Other)
  Sender: FDA-Public Use
  Company Number: B0576898A

PATIENT
  Age: 36 Year
  Sex: Male

DRUGS (8)
  1. LAMIVUDINE [Suspect]
     Indication: HIV INFECTION
  2. ZIDOVUDINE [Suspect]
     Indication: HIV INFECTION
  3. NEVIRAPINE [Suspect]
     Indication: HIV INFECTION
  4. CO-TRIMOXAZOLE [Concomitant]
  5. ISONIAZID [Concomitant]
  6. RIFAMPICIN [Concomitant]
  7. ETHAMBUTOL HCL [Concomitant]
  8. PYRAZINAMIDE [Concomitant]

REACTIONS (9)
  - ANAEMIA [None]
  - DIARRHOEA [None]
  - DISSEMINATED TUBERCULOSIS [None]
  - HEART RATE INCREASED [None]
  - IMMUNE RECONSTITUTION SYNDROME [None]
  - PNEUMOCYSTIS JIROVECI INFECTION [None]
  - SPLENIC RUPTURE [None]
  - SPLENOMEGALY [None]
  - TUBERCULID [None]
